FAERS Safety Report 4713073-3 (Version None)
Quarter: 2005Q3

REPORT INFORMATION
  Report Type: 
  Country: None (occurrence: None)
  Receive Date: 20050711
  Receipt Date: 20050627
  Transmission Date: 20060218
  Serious: Yes (Hospitalization, Disabling)
  Sender: FDA-Public Use
  Company Number: HQWYE259306JUN05

PATIENT
  Sex: Male

DRUGS (25)
  1. RAPAMUNE [Suspect]
     Indication: NEUROPATHY
     Dosage: 2 MG 1X PER 1 DAY ORAL
     Route: 048
  2. RAPAMUNE [Suspect]
     Indication: PROPHYLAXIS AGAINST TRANSPLANT REJECTION
     Dosage: 2 MG 1X PER 1 DAY ORAL
     Route: 048
  3. CALCIUM CARBONATE (CALCIUM CARBONATE) [Concomitant]
  4. LOSEC (OMEPRAZOLE) [Concomitant]
  5. SEPTRA (SULFAMETHOXAZOLE/TRIMETHROPRIM) [Concomitant]
  6. CELLCEPT [Concomitant]
  7. ASPIRIN (ACETYLSALCYLIC ACID) [Concomitant]
  8. TYLENOL (PARACEMTAMOL) [Concomitant]
  9. FERROUS SULFATE TAB [Concomitant]
  10. LACTULOSE [Concomitant]
  11. RITALIN [Concomitant]
  12. PREDNISONE [Concomitant]
  13. VALGANCICLOVIR (VALGANCICLOVIR) [Concomitant]
  14. ALTACE [Concomitant]
  15. COLACE (DOCUSATE SODIUM) [Concomitant]
  16. SENOKOT [Concomitant]
  17. TINZAPARIN SODIUM (HEPARI-FRACTION, SODIUM SALT) [Concomitant]
  18. K-DUR 10 [Concomitant]
  19. LASIX [Concomitant]
  20. IMOVANE (ZOPICLONE) [Concomitant]
  21. HEPARIN [Concomitant]
  22. NYSTATIN [Concomitant]
  23. VITAMIN D [Concomitant]
  24. DULCOLA (BISACODYL) [Concomitant]
  25. KAYEXALATE (SODIUM POYLSTYRENE SULFONATE) [Concomitant]

REACTIONS (1)
  - AMMONIA INCREASED [None]
